FAERS Safety Report 19166512 (Version 1)
Quarter: 2021Q2

REPORT INFORMATION
  Report Type: Spontaneous
  Country: DE (occurrence: DE)
  Receive Date: 20210422
  Receipt Date: 20210422
  Transmission Date: 20210717
  Serious: Yes (Death, Hospitalization)
  Sender: FDA-Public Use
  Company Number: DE-TEVA-2021-DE-1902925

PATIENT
  Age: 79 Year
  Sex: Male

DRUGS (14)
  1. ASS 100 [Concomitant]
     Active Substance: ASPIRIN
     Dosage: 100 MILLIGRAM DAILY; 100 MG, 0?1?0?0
  2. METOCLOPRAMID [Concomitant]
     Active Substance: METOCLOPRAMIDE
     Dosage: 10 MG, IF NECESSARY UP TO 3 TIMES
  3. NACL 0,9%, CLEAR?FLEX [Suspect]
     Active Substance: SODIUM CHLORIDE
     Dosage: 1000 MG, FIRST ADMINISTERED ON 04022021
     Route: 042
  4. ONDANSETRON [Concomitant]
     Active Substance: ONDANSETRON
     Dosage: 8 MG, IF NECESSARY UP TO 2 TIMES
  5. TOUJEO [Concomitant]
     Active Substance: INSULIN GLARGINE
     Dosage: 18 IU (INTERNATIONAL UNIT) DAILY; 0?0?1?0
  6. ATORVASTATIN [Concomitant]
     Active Substance: ATORVASTATIN
     Dosage: 40 MILLIGRAM DAILY; 40 MG, 0?0?1?0
  7. CANDESARTAN. [Concomitant]
     Active Substance: CANDESARTAN
     Dosage: 32 MILLIGRAM DAILY; 1?0?1?0
  8. METAMIZOL [Concomitant]
     Active Substance: METAMIZOLE SODIUM
     Dosage: 500 MG, IF NECESSARY UP TO 4 TIMES
  9. METFORMIN [Concomitant]
     Active Substance: METFORMIN HYDROCHLORIDE
     Dosage: DISCONTINUED
  10. GEMCITABINE. [Suspect]
     Active Substance: GEMCITABINE
     Dosage: 1900 MG, FIRST GIVEN ON 04022021
     Route: 042
  11. DEXAMETHASON [Suspect]
     Active Substance: DEXAMETHASONE
     Dosage: 8 MG, FIRST ADMINISTERED ON 04022
     Route: 048
  12. ABRAXANE [Suspect]
     Active Substance: PACLITAXEL
     Dosage: 230 MG, FIRST ADMINISTERED ON 04022021
     Route: 042
  13. TORASEMID [Concomitant]
     Active Substance: TORSEMIDE
     Dosage: 10 MILLIGRAM DAILY; 1?0?0?0
  14. METOPROLOL. [Concomitant]
     Active Substance: METOPROLOL
     Dosage: 95 MG, 1?0?0.5?0

REACTIONS (5)
  - Asthenia [Unknown]
  - Jaundice [Unknown]
  - Immobile [Unknown]
  - Pyrexia [Unknown]
  - General physical health deterioration [Unknown]
